FAERS Safety Report 11385791 (Version 2)
Quarter: 2015Q3

REPORT INFORMATION
  Report Type: Spontaneous
  Country: AU (occurrence: AU)
  Receive Date: 20150817
  Receipt Date: 20150908
  Transmission Date: 20151125
  Serious: Yes (Other)
  Sender: FDA-Public Use
  Company Number: AU-AMGEN-AUSSP2015081075

PATIENT
  Sex: Female
  Weight: 39 kg

DRUGS (4)
  1. ARANESP [Concomitant]
     Active Substance: DARBEPOETIN ALFA
     Dosage: 100 UNK, QWK
     Route: 042
  2. CLEXANE [Concomitant]
     Active Substance: ENOXAPARIN SODIUM
     Dosage: 60 UNK, 3 TIMES/WK
     Route: 042
  3. RENAGEL [Concomitant]
     Active Substance: SEVELAMER HYDROCHLORIDE
     Dosage: 800 UNK, TID
     Route: 048
  4. SENSIPAR [Suspect]
     Active Substance: CINACALCET HYDROCHLORIDE
     Indication: HYPERPARATHYROIDISM TERTIARY
     Dosage: 30 MG, QD
     Route: 048
     Dates: start: 2014, end: 201502

REACTIONS (3)
  - Calciphylaxis [Not Recovered/Not Resolved]
  - Parathyroid tumour benign [Unknown]
  - Dystrophic calcification [Unknown]

NARRATIVE: CASE EVENT DATE: 2015
